FAERS Safety Report 8276175-3 (Version None)
Quarter: 2012Q2

REPORT INFORMATION
  Report Type: 
  Country: None (occurrence: None)
  Receive Date: 20120412
  Receipt Date: 20120406
  Transmission Date: 20120825
  Serious: Yes (Life-Threatening)
  Sender: FDA-Public Use
  Company Number: FR-SANOFI-AVENTIS-2012SA024236

PATIENT
  Age: 85 Year
  Sex: Male

DRUGS (7)
  1. ATORVASTATIN [Suspect]
     Route: 048
     Dates: end: 20120229
  2. ASPIRIN [Suspect]
     Indication: ATRIAL FIBRILLATION
     Route: 048
     Dates: end: 20120229
  3. PREVISCAN [Suspect]
     Indication: ATRIAL FIBRILLATION
     Dosage: FRENQUENCY: ACCORDING TO INR.
     Route: 048
     Dates: end: 20120229
  4. RABEPRAZOLE SODIUM [Suspect]
     Route: 048
     Dates: end: 20120229
  5. LASIX [Suspect]
     Route: 048
     Dates: end: 20120229
  6. BISOPROLOL FUMARATE [Suspect]
     Route: 048
     Dates: end: 20120229
  7. ACETAMINOPHEN [Suspect]
     Route: 048

REACTIONS (1)
  - CEREBRAL HAEMATOMA [None]
